FAERS Safety Report 21273545 (Version 1)
Quarter: 2022Q3

REPORT INFORMATION
  Report Type: Spontaneous
  Country: US (occurrence: None)
  Receive Date: 20220830
  Receipt Date: 20220830
  Transmission Date: 20221026
  Serious: Yes (Other)
  Sender: FDA-Public Use
  Company Number: None

PATIENT
  Age: 40 Year
  Sex: Male
  Weight: 88.0 kg

DRUGS (4)
  1. DIMETHYL FUMARATE [Suspect]
     Active Substance: DIMETHYL FUMARATE
     Indication: Multiple sclerosis
     Dosage: 1 PILL 2 RIMES/DAY ORAL?
     Route: 048
     Dates: start: 20210507, end: 20210510
  2. FENOFIBRATE [Concomitant]
     Active Substance: FENOFIBRATE
  3. VASCEPA [Concomitant]
     Active Substance: ICOSAPENT ETHYL
  4. VITAMIN D [Concomitant]
     Active Substance: VITAMIN D NOS

REACTIONS (4)
  - Diarrhoea [None]
  - Abdominal pain [None]
  - Abdominal pain upper [None]
  - Product substitution issue [None]

NARRATIVE: CASE EVENT DATE: 20210507
